FAERS Safety Report 6966063 (Version 6)
Quarter: 2014Q1

REPORT INFORMATION
  Report Type: Spontaneous
  Country: US (occurrence: US)
  Receive Date: 20090410
  Receipt Date: 20140117
  Transmission Date: 20141002
  Serious: Yes (Other)
  Sender: FDA-Public Use
  Company Number: US-BIOGENIDEC-2009BI010384

PATIENT
  Age: 60 Year
  Sex: Female

DRUGS (4)
  1. AVONEX [Suspect]
     Indication: MULTIPLE SCLEROSIS
     Route: 030
     Dates: start: 20060828, end: 201201
  2. CRESTOR [Concomitant]
  3. LOVAZA [Concomitant]
  4. PROVIGIL [Concomitant]
     Indication: FATIGUE
     Dates: start: 1990

REACTIONS (15)
  - Hypertrophic cardiomyopathy [Not Recovered/Not Resolved]
  - Mitral valve incompetence [Not Recovered/Not Resolved]
  - Bundle branch block right [Unknown]
  - Aortic valve sclerosis [Unknown]
  - Aspiration [Unknown]
  - Fall [Recovered/Resolved]
  - Tooth fracture [Recovered/Resolved]
  - Hepatic enzyme abnormal [Recovered/Resolved]
  - Serum ferritin increased [Not Recovered/Not Resolved]
  - Hypoaesthesia [Recovered/Resolved]
  - Neurogenic bladder [Not Recovered/Not Resolved]
  - Diarrhoea [Recovered/Resolved]
  - Vomiting [Recovered/Resolved]
  - Influenza like illness [Recovered/Resolved]
  - Dizziness [Recovered/Resolved]
